FAERS Safety Report 7659758-0 (Version None)
Quarter: 2011Q3

REPORT INFORMATION
  Report Type: 
  Country: None (occurrence: None)
  Receive Date: 20110802
  Receipt Date: 20110721
  Transmission Date: 20111222
  Serious: Yes (Hospitalization)
  Sender: FDA-Public Use
  Company Number: 2011SP034288

PATIENT
  Age: 80 Year
  Sex: Female

DRUGS (1)
  1. DULERA ORAL INHALATION [Suspect]
     Indication: WHEEZING
     Dosage: 1 DF; INH
     Route: 055

REACTIONS (2)
  - HYPERTENSIVE CRISIS [None]
  - OFF LABEL USE [None]
